FAERS Safety Report 9459922 (Version 1)
Quarter: 2013Q3

REPORT INFORMATION
  Report Type: Spontaneous
  Country: US (occurrence: US)
  Receive Date: 20130815
  Receipt Date: 20130815
  Transmission Date: 20140515
  Serious: Yes (Other)
  Sender: FDA-Public Use
  Company Number: US-BAYER-2013-098459

PATIENT
  Sex: Male

DRUGS (7)
  1. BAYER ASPIRIN REGIMEN ADULT LOW STRENGTH [Suspect]
     Dosage: 81 MG, UNK
     Dates: end: 201307
  2. CELEBREX [Suspect]
     Indication: ARTHRITIS
     Dosage: DAILY DOSE 200 MG
     Route: 048
     Dates: end: 201307
  3. ZOCOR [Concomitant]
  4. OPANA [Concomitant]
  5. ROXICODONE [Concomitant]
  6. CELEXA [Concomitant]
  7. TOPROL [Concomitant]

REACTIONS (1)
  - Gastrointestinal haemorrhage [Recovered/Resolved]
